FAERS Safety Report 13366114 (Version 1)
Quarter: 2017Q1

REPORT INFORMATION
  Report Type: Report from Study
  Country: US (occurrence: US)
  Receive Date: 20170323
  Receipt Date: 20170323
  Transmission Date: 20170429
  Serious: Yes (Hospitalization)
  Sender: FDA-Public Use
  Company Number: US-IPSEN-CABO-17008360

PATIENT
  Age: 58 Year
  Sex: Male

DRUGS (25)
  1. LEVAQUIN [Concomitant]
     Active Substance: LEVOFLOXACIN
  2. GUAIFEN-P-EPHED-COD [Concomitant]
  3. SYNTHROID [Concomitant]
     Active Substance: LEVOTHYROXINE SODIUM
  4. FLAXSEED [Concomitant]
     Active Substance: FLAX SEED
  5. DEXAMETHASONE. [Concomitant]
     Active Substance: DEXAMETHASONE
  6. NORVASC [Concomitant]
     Active Substance: AMLODIPINE BESYLATE
  7. ALBUTEROL. [Concomitant]
     Active Substance: ALBUTEROL
  8. MULTIVITAMIN [Concomitant]
     Active Substance: VITAMINS
  9. ULORIC [Concomitant]
     Active Substance: FEBUXOSTAT
  10. MINOCYCLINE [Concomitant]
     Active Substance: MINOCYCLINE\MINOCYCLINE HYDROCHLORIDE
  11. ZOLPIDEM [Concomitant]
     Active Substance: ZOLPIDEM\ZOLPIDEM TARTRATE
  12. COENZYME Q10 [Concomitant]
     Active Substance: UBIDECARENONE
  13. CABOMETYX [Suspect]
     Active Substance: CABOZANTINIB S-MALATE
     Indication: METASTASES TO BONE
  14. CHOLECALCIFEROL [Concomitant]
     Active Substance: CHOLECALCIFEROL
  15. CABOMETYX [Suspect]
     Active Substance: CABOZANTINIB S-MALATE
     Indication: RENAL CANCER
     Dosage: 40 MG, QD
     Route: 048
     Dates: start: 20161115, end: 20170224
  16. TESSALON [Concomitant]
     Active Substance: BENZONATATE
  17. ASPIRIN. [Concomitant]
     Active Substance: ASPIRIN
  18. PROAIR HFA [Concomitant]
     Active Substance: ALBUTEROL SULFATE
  19. LEVOFLOXACIN. [Concomitant]
     Active Substance: LEVOFLOXACIN
  20. METOPROLOL. [Concomitant]
     Active Substance: METOPROLOL
  21. CABOMETYX [Suspect]
     Active Substance: CABOZANTINIB S-MALATE
     Indication: METASTASES TO LIVER
  22. OXYCONTIN [Concomitant]
     Active Substance: OXYCODONE HYDROCHLORIDE
  23. SENOKOT [Concomitant]
     Active Substance: SENNOSIDES
  24. ROBITUSSIN COLD + CHESTY COUGH [Concomitant]
  25. AMBIEN [Concomitant]
     Active Substance: ZOLPIDEM TARTRATE

REACTIONS (3)
  - Intestinal perforation [Recovered/Resolved with Sequelae]
  - Pleural effusion [Unknown]
  - Peritonitis [Unknown]

NARRATIVE: CASE EVENT DATE: 20170212
